FAERS Safety Report 24868750 (Version 1)
Quarter: 2025Q1

REPORT INFORMATION
  Report Type: Report from Study
  Country: US (occurrence: US)
  Receive Date: 20250121
  Receipt Date: 20250121
  Transmission Date: 20250408
  Serious: Yes (Other)
  Sender: UCB
  Company Number: US-UCBSA-2025003104

PATIENT
  Sex: Female

DRUGS (1)
  1. LACOSAMIDE [Suspect]
     Active Substance: LACOSAMIDE
     Indication: Seizure
     Dosage: 100 MILLIGRAM, 1 TABLET, 2X/DAY (BID)

REACTIONS (3)
  - Blindness unilateral [Not Recovered/Not Resolved]
  - Cataract [Not Recovered/Not Resolved]
  - Tremor [Not Recovered/Not Resolved]
